FAERS Safety Report 9391851 (Version 3)
Quarter: 2013Q3

REPORT INFORMATION
  Report Type: Spontaneous
  Country: US (occurrence: None)
  Receive Date: 20130705
  Receipt Date: 20130801
  Transmission Date: 20140515
  Serious: Yes (Hospitalization, Other)
  Sender: FDA-Public Use
  Company Number: JPI-P-030310

PATIENT
  Age: 43 Year
  Sex: Female
  Weight: 97.52 kg

DRUGS (13)
  1. XYREM (500 MILLIGRAM/MILLILITERS, SOLUTION) (SODIUM OXYBATE) [Suspect]
     Indication: CATAPLEXY
     Dosage: 4.5 GM (2.25 GM, 2 IN 1 D)
     Route: 048
     Dates: start: 20120810, end: 2012
  2. MODAFINIL [Concomitant]
  3. DEXTROAMPHETAMINE [Concomitant]
  4. MONTELUKAST SODIUM [Concomitant]
  5. ARMODAFINIL [Concomitant]
  6. AMPHETAMINE, DEXTROAMPHETAMINE MIXED SALTS [Concomitant]
  7. IMIPRAMINE [Concomitant]
  8. FLUCTICASONE/SALMETEROL [Concomitant]
  9. LUBIPROSTONE (CACHET) [Concomitant]
  10. CITALOPRAM HBR [Concomitant]
  11. FUROSEMIDE [Concomitant]
  12. PANTOPRAZOLE SODIUM DR [Concomitant]
  13. PROCHLORPERAZINE [Concomitant]

REACTIONS (19)
  - Weight decreased [None]
  - Nausea [None]
  - Vomiting [None]
  - Abdominal discomfort [None]
  - Choking [None]
  - Retching [None]
  - Confusional state [None]
  - Malaise [None]
  - Depressed level of consciousness [None]
  - Sedation [None]
  - Fatigue [None]
  - Snoring [None]
  - Anxiety [None]
  - Apnoea [None]
  - Constipation [None]
  - Gastrointestinal disorder [None]
  - Weight decreased [None]
  - Sleep disorder [None]
  - Irritable bowel syndrome [None]
